FAERS Safety Report 6855972-2 (Version None)
Quarter: 2010Q3

REPORT INFORMATION
  Report Type: 
  Country: None (occurrence: None)
  Receive Date: 20100716
  Receipt Date: 20100716
  Transmission Date: 20110219
  Serious: Yes (Disabling)
  Sender: FDA-Public Use
  Company Number: None

PATIENT
  Sex: Male
  Weight: 76.2043 kg

DRUGS (2)
  1. LAMICTAL [Suspect]
     Indication: CONVULSION
     Dosage: 150 MG 2 PER DAY MOUTH
     Route: 048
     Dates: start: 20050401, end: 20100701
  2. KEPPRA [Concomitant]

REACTIONS (1)
  - MEMORY IMPAIRMENT [None]
